FAERS Safety Report 24006683 (Version 2)
Quarter: 2024Q3

REPORT INFORMATION
  Report Type: Spontaneous
  Country: US (occurrence: US)
  Receive Date: 20240624
  Receipt Date: 20240924
  Transmission Date: 20241017
  Serious: No
  Sender: BRISTOL MYERS SQUIBB
  Company Number: US-BRISTOL-MYERS SQUIBB COMPANY-2024-101040

PATIENT
  Age: 58 Year
  Sex: Female
  Weight: 64.46 kg

DRUGS (1)
  1. YERVOY [Suspect]
     Active Substance: IPILIMUMAB
     Indication: Hodgkin^s disease
     Dosage: VIAL
     Route: 042

REACTIONS (1)
  - Off label use [Unknown]
